FAERS Safety Report 7724346-4 (Version None)
Quarter: 2011Q3

REPORT INFORMATION
  Report Type: 
  Country: None (occurrence: None)
  Receive Date: 20110829
  Receipt Date: 20110815
  Transmission Date: 20111222
  Serious: Yes (Other)
  Sender: FDA-Public Use
  Company Number: 1017059

PATIENT
  Age: 53 Year
  Sex: Female
  Weight: 58.18 kg

DRUGS (1)
  1. MORPHINE SULFATE [Suspect]
     Indication: PRODUCT USED FOR UNKNOWN INDICATION

REACTIONS (4)
  - FOREIGN BODY IN EYE [None]
  - ACCIDENT AT WORK [None]
  - CORNEAL ABRASION [None]
  - DEVICE BREAKAGE [None]
